FAERS Safety Report 15119389 (Version 1)
Quarter: 2018Q3

REPORT INFORMATION
  Report Type: Spontaneous
  Country: IT (occurrence: IT)
  Receive Date: 20180709
  Receipt Date: 20180709
  Transmission Date: 20181010
  Serious: Yes (Other)
  Sender: FDA-Public Use
  Company Number: IT-ALKEM LABORATORIES LIMITED-IT-ALKEM-2018-05012

PATIENT
  Age: 44 Year
  Sex: Male

DRUGS (2)
  1. FINASTERIDE. [Suspect]
     Active Substance: FINASTERIDE
     Indication: ANDROGENETIC ALOPECIA
     Dosage: 1 MG, QD
     Route: 065
  2. PROPECIA [Suspect]
     Active Substance: FINASTERIDE
     Indication: ANDROGENETIC ALOPECIA
     Dosage: 1 MG, QD
     Route: 065

REACTIONS (26)
  - Apathy [Unknown]
  - Genital paraesthesia [Unknown]
  - Irritability [Unknown]
  - Panic attack [Unknown]
  - Amnesia [Unknown]
  - Feelings of worthlessness [Unknown]
  - Sleep disorder [Unknown]
  - Tic [Unknown]
  - Muscle spasms [Unknown]
  - Fatigue [Unknown]
  - Arthralgia [Unknown]
  - Depression [Unknown]
  - Suicidal ideation [Unknown]
  - Anger [Unknown]
  - Loss of libido [Unknown]
  - Psychiatric symptom [Unknown]
  - Anxiety [Unknown]
  - Muscle contractions involuntary [Unknown]
  - Asthenia [Unknown]
  - Ataxia [Unknown]
  - Erectile dysfunction [Unknown]
  - Disturbance in attention [Unknown]
  - Memory impairment [Unknown]
  - Muscle tightness [Unknown]
  - Tremor [Unknown]
  - Myalgia [Unknown]
